FAERS Safety Report 10029447 (Version 4)
Quarter: 2014Q2

REPORT INFORMATION
  Report Type: Spontaneous
  Country: IE (occurrence: IE)
  Receive Date: 20140322
  Receipt Date: 20140623
  Transmission Date: 20141212
  Serious: Yes (Hospitalization, Other)
  Sender: FDA-Public Use
  Company Number: PHFR2014IE002284

PATIENT
  Age: 67 Year
  Sex: Male

DRUGS (7)
  1. CLOZARIL [Suspect]
     Indication: SCHIZOPHRENIA
     Dosage: UNK
     Route: 048
     Dates: start: 20051031
  2. CLOZARIL [Suspect]
     Dosage: 275 MG
     Route: 048
  3. CLOZARIL [Suspect]
     Dosage: UNK
     Route: 048
  4. CITALOPRAM [Concomitant]
     Indication: MOOD ALTERED
     Dosage: 20 UKN
  5. LORMETAZEPAM [Concomitant]
     Dosage: 1 UKN
  6. OMEPRAZOLE [Concomitant]
     Indication: PEPTIC ULCER
     Dosage: 20 UKN
  7. ROSUVASTATIN [Concomitant]
     Indication: LIPIDS INCREASED
     Dosage: 10 UKN

REACTIONS (3)
  - Cognitive disorder [Not Recovered/Not Resolved]
  - Cerebral ischaemia [Unknown]
  - Dementia [Not Recovered/Not Resolved]
